FAERS Safety Report 16704822 (Version 1)
Quarter: 2019Q3

REPORT INFORMATION
  Report Type: Spontaneous
  Country: GB (occurrence: GB)
  Receive Date: 20190814
  Receipt Date: 20190814
  Transmission Date: 20191004
  Serious: Yes (Other)
  Sender: FDA-Public Use
  Company Number: PHHY2019GB186241

PATIENT
  Age: 34 Year
  Sex: Female
  Weight: 76.2 kg

DRUGS (1)
  1. PHENOXYMETHYLPENICILLIN [Suspect]
     Active Substance: PENICILLIN V
     Indication: TONSILLITIS
     Dosage: 1000 MG, QD
     Route: 048
     Dates: start: 20190719, end: 20190719

REACTIONS (4)
  - Abdominal pain [Recovering/Resolving]
  - Pyrexia [Unknown]
  - Delirium [Unknown]
  - Vomiting [Recovering/Resolving]

NARRATIVE: CASE EVENT DATE: 20190719
